FAERS Safety Report 14338940 (Version 2)
Quarter: 2018Q1

REPORT INFORMATION
  Report Type: Spontaneous
  Country: BR (occurrence: BR)
  Receive Date: 20171229
  Receipt Date: 20180107
  Transmission Date: 20180509
  Serious: Yes (Other)
  Sender: FDA-Public Use
  Company Number: BR-BAXTER-2017BAX044617

PATIENT
  Sex: Male
  Weight: 60 kg

DRUGS (2)
  1. BUPICAN HEAVY [Suspect]
     Active Substance: BUPIVACAINE HYDROCHLORIDE
     Dosage: ADDITIONAL DOSAGE
     Route: 037
  2. BUPICAN HEAVY [Suspect]
     Active Substance: BUPIVACAINE HYDROCHLORIDE
     Indication: ANAESTHESIA PROCEDURE
     Route: 037

REACTIONS (1)
  - Therapy non-responder [Unknown]
